FAERS Safety Report 19650869 (Version 1)
Quarter: 2021Q3

REPORT INFORMATION
  Report Type: Spontaneous
  Country: GB (occurrence: GB)
  Receive Date: 20210803
  Receipt Date: 20210803
  Transmission Date: 20211014
  Serious: Yes (Other)
  Sender: FDA-Public Use
  Company Number: GB-AMGEN-GBRSP2021115637

PATIENT
  Age: 62 Year
  Sex: Female

DRUGS (10)
  1. CODEINE [Concomitant]
     Active Substance: CODEINE
     Indication: ILL-DEFINED DISORDER
     Dosage: UNK
  2. ADCAL D3 [Concomitant]
     Active Substance: CALCIUM CARBONATE\CHOLECALCIFEROL
     Indication: ILL-DEFINED DISORDER
     Dosage: UNK
  3. RIVAROXABAN [Concomitant]
     Active Substance: RIVAROXABAN
     Indication: ILL-DEFINED DISORDER
     Dosage: UNK
  4. PERTUZUMAB. [Suspect]
     Active Substance: PERTUZUMAB
     Indication: ILL-DEFINED DISORDER
     Dosage: UNK
     Route: 065
  5. PROLIA [Suspect]
     Active Substance: DENOSUMAB
     Indication: ILL-DEFINED DISORDER
     Dosage: UNK
     Route: 065
  6. LANSOPRAZOLE. [Concomitant]
     Active Substance: LANSOPRAZOLE
     Indication: ILL-DEFINED DISORDER
     Dosage: UNK
  7. TRASTUZUMAB. [Suspect]
     Active Substance: TRASTUZUMAB
     Indication: ILL-DEFINED DISORDER
     Dosage: UNK
     Route: 065
  8. PARACETAMOL [Concomitant]
     Active Substance: ACETAMINOPHEN
     Indication: ILL-DEFINED DISORDER
     Dosage: UNK
  9. MORPHINE [Concomitant]
     Active Substance: MORPHINE
     Indication: ILL-DEFINED DISORDER
     Dosage: UNK
  10. MORPHINE SULFATE. [Concomitant]
     Active Substance: MORPHINE SULFATE
     Indication: ILL-DEFINED DISORDER
     Dosage: UNK

REACTIONS (5)
  - Muscle spasms [Unknown]
  - Back pain [Unknown]
  - Fatigue [Unknown]
  - Off label use [Unknown]
  - Neuropathy peripheral [Unknown]
